FAERS Safety Report 7765588-1 (Version None)
Quarter: 2011Q3

REPORT INFORMATION
  Report Type: 
  Country: None (occurrence: None)
  Receive Date: 20110921
  Receipt Date: 20110913
  Transmission Date: 20111222
  Serious: Yes (Hospitalization)
  Sender: FDA-Public Use
  Company Number: PHEH2011US03638

PATIENT
  Sex: Female
  Weight: 74.82 kg

DRUGS (6)
  1. SERTRALINE HYDROCHLORIDE [Concomitant]
  2. NITROFURANTOIN [Concomitant]
  3. BACLOFEN [Concomitant]
  4. LYRICA [Concomitant]
     Dosage: UNK
  5. GILENYA [Suspect]
     Indication: MULTIPLE SCLEROSIS
     Dosage: 0.5 MG, DAILY
     Route: 048
     Dates: start: 20110901, end: 20110911
  6. FAMPRIDINE [Concomitant]

REACTIONS (4)
  - HYPOAESTHESIA [None]
  - MUSCLE TIGHTNESS [None]
  - MUSCULAR WEAKNESS [None]
  - ABASIA [None]
